FAERS Safety Report 25174667 (Version 1)
Quarter: 2025Q2

REPORT INFORMATION
  Report Type: Report from Study
  Country: JP (occurrence: JP)
  Receive Date: 20250408
  Receipt Date: 20250408
  Transmission Date: 20250716
  Serious: Yes (Other)
  Sender: ALEXION PHARMACEUTICALS
  Company Number: JP-ASTRAZENECA-250008962_011620_P_1

PATIENT
  Age: 54 Year
  Weight: 59 kg

DRUGS (1)
  1. OLAPARIB [Suspect]
     Active Substance: OLAPARIB
     Dosage: 300 MILLIGRAM, QD

REACTIONS (2)
  - Myelosuppression [Recovered/Resolved]
  - Platelet count decreased [Recovered/Resolved]
